FAERS Safety Report 7591972-5 (Version None)
Quarter: 2011Q3

REPORT INFORMATION
  Report Type: 
  Country: None (occurrence: None)
  Receive Date: 20110701
  Receipt Date: 20110701
  Transmission Date: 20111222
  Serious: Yes (Hospitalization)
  Sender: FDA-Public Use
  Company Number: None

PATIENT
  Age: 86 Year
  Sex: Female
  Weight: 49.8957 kg

DRUGS (16)
  1. TRAMADOL HCL [Suspect]
     Indication: PAIN
     Dosage: 50 MG TID 047
     Dates: start: 20110519, end: 20110521
  2. PRINIVIL [Concomitant]
  3. MUCINEX [Concomitant]
  4. LIDOCAINE [Concomitant]
  5. MIRTAZAPINE [Concomitant]
  6. DITIAZEM [Concomitant]
  7. PHENYTOIN [Concomitant]
  8. ADVAIR DISKUS 100/50 [Concomitant]
  9. CALCIUM WITH VITAMIN D [Concomitant]
  10. WELLBUTRIN XL [Concomitant]
  11. COMBIVENT [Concomitant]
  12. TYLENOL-500 [Concomitant]
  13. CLONAZEPAM [Concomitant]
  14. FENTANYL-100 [Concomitant]
  15. CLOPIDOGREL [Concomitant]
  16. RANITIDINE [Concomitant]

REACTIONS (3)
  - TREMOR [None]
  - CONVULSION [None]
  - CONTUSION [None]
